FAERS Safety Report 13455415 (Version 2)
Quarter: 2025Q3

REPORT INFORMATION
  Report Type: Spontaneous
  Country: US (occurrence: US)
  Receive Date: 20170418
  Receipt Date: 20250814
  Transmission Date: 20251021
  Serious: Yes (Other)
  Sender: BAYER HEALTHCARE LLC
  Company Number: US-BAYER-2017-068615

PATIENT
  Age: 29 Year
  Sex: Female

DRUGS (4)
  1. ASPIRIN [Suspect]
     Active Substance: ASPIRIN
     Indication: Segmented hyalinising vasculitis
  2. PENTOXIFYLLINE [Suspect]
     Active Substance: PENTOXIFYLLINE
     Indication: Segmented hyalinising vasculitis
     Dosage: 1200 MG, QD
  3. AZATHIOPRINE [Suspect]
     Active Substance: AZATHIOPRINE
     Indication: Segmented hyalinising vasculitis
  4. CYCLOSPORINE [Suspect]
     Active Substance: CYCLOSPORINE
     Indication: Segmented hyalinising vasculitis

REACTIONS (6)
  - Diabetes mellitus [None]
  - Off label use [None]
  - Cushingoid [None]
  - Hirsutism [None]
  - Central obesity [None]
  - Hypertension [None]
